FAERS Safety Report 7753959-9 (Version None)
Quarter: 2011Q3

REPORT INFORMATION
  Report Type: 
  Country: None (occurrence: None)
  Receive Date: 20110915
  Receipt Date: 20110908
  Transmission Date: 20111222
  Serious: Yes (Other)
  Sender: FDA-Public Use
  Company Number: US-SANOFI-AVENTIS-2011SA059422

PATIENT
  Age: 60 Year
  Sex: Male

DRUGS (10)
  1. COREG [Concomitant]
  2. CLONIDINE [Concomitant]
  3. NIACIN [Concomitant]
  4. BENICAR [Concomitant]
  5. OMEPRAZOLE [Concomitant]
  6. OXYCODONE HCL [Concomitant]
  7. PLAVIX [Suspect]
     Route: 048
     Dates: start: 20100101
  8. DIAZEPAM [Concomitant]
  9. LAXATIVES [Concomitant]
  10. INSULIN [Concomitant]

REACTIONS (5)
  - ANGINA PECTORIS [None]
  - DRUG INTERACTION [None]
  - BLINDNESS [None]
  - VISUAL IMPAIRMENT [None]
  - DIZZINESS [None]
